FAERS Safety Report 11519561 (Version 1)
Quarter: 2015Q3

REPORT INFORMATION
  Report Type: Spontaneous
  Country: US (occurrence: US)
  Receive Date: 20150918
  Receipt Date: 20150918
  Transmission Date: 20151125
  Serious: No
  Sender: FDA-Public Use
  Company Number: US-GLENMARK PHARMACEUTICALS INC, USA.-2014GMK010709

PATIENT
  Age: 36 Year
  Sex: Female

DRUGS (9)
  1. LUPRON DEPOT-PED [Suspect]
     Active Substance: LEUPROLIDE ACETATE
     Dosage: 11.25 MG / 3 MONTHS
     Dates: start: 20140702
  2. GABAPENTIN. [Concomitant]
     Active Substance: GABAPENTIN
     Dosage: UNK, TID
  3. HYDROCODONE [Concomitant]
     Active Substance: HYDROCODONE
     Dosage: 3-5 TABLETS, PRN
  4. LUPRON DEPOT-PED [Suspect]
     Active Substance: LEUPROLIDE ACETATE
  5. NEXIUM [Concomitant]
     Active Substance: ESOMEPRAZOLE MAGNESIUM
     Dosage: UNK
  6. FLEXERIL [Concomitant]
     Active Substance: CYCLOBENZAPRINE HYDROCHLORIDE
     Dosage: 10 MG IN THE EVENING
  7. NORETHINDRONE ACETATE TABLETS [Suspect]
     Active Substance: NORETHINDRONE ACETATE
     Dosage: 5 MG, UNK
     Route: 048
     Dates: start: 20140702
  8. NORETHINDRONE ACETATE TABLETS [Suspect]
     Active Substance: NORETHINDRONE ACETATE
  9. CYMBALTA [Concomitant]
     Active Substance: DULOXETINE HYDROCHLORIDE
     Dosage: 1 DF, QD

REACTIONS (12)
  - Influenza like illness [Unknown]
  - Irritability [Unknown]
  - Headache [Unknown]
  - Pain [Unknown]
  - Hot flush [Unknown]
  - Vaginal haemorrhage [Unknown]
  - Fatigue [Unknown]
  - Anxiety [Unknown]
  - Nausea [Unknown]
  - Mood swings [Unknown]
  - Asthenia [Unknown]
  - Drug effect decreased [Unknown]

NARRATIVE: CASE EVENT DATE: 20140704
